FAERS Safety Report 9357504 (Version 2)
Quarter: 2013Q3

REPORT INFORMATION
  Report Type: Report from Study
  Country: MX (occurrence: MX)
  Receive Date: 20130620
  Receipt Date: 20130905
  Transmission Date: 20140515
  Serious: Yes (Hospitalization, Other)
  Sender: FDA-Public Use
  Company Number: PHHY2012MX117838

PATIENT
  Age: 84 Year
  Sex: Female

DRUGS (9)
  1. EXFORGE [Suspect]
     Indication: HYPERTENSION
     Dosage: 1 DF (160/5MG), DAILY
     Route: 048
     Dates: start: 201209, end: 201306
  2. LASILACTON [Concomitant]
     Dosage: 1 DF, DAILY
     Route: 048
  3. OMEPRAZOLE [Concomitant]
     Indication: GASTRITIS
     Dosage: 2 DF, DAILY
  4. ASPIRIN PROTECT [Concomitant]
     Dosage: 1 DF, DAILY
     Route: 048
  5. SINTROM [Concomitant]
     Indication: ANGIOPATHY
     Dosage: 0.25 DF, DAILY
  6. DIGOXIN [Concomitant]
     Indication: HYPERTENSION
     Dosage: 3 DF, QW
  7. METOPROLOL [Concomitant]
     Indication: HYPERTENSION
     Dosage: 2 DF, AT NIGHT
     Route: 048
  8. RIVOTRIL [Concomitant]
     Indication: INSOMNIA
     Dosage: 0.5 DF, DAILY
     Route: 048
  9. IMIPRAMINA [Concomitant]
     Dosage: 0.5 DF, UNK
     Route: 048

REACTIONS (4)
  - Cardiac disorder [Not Recovered/Not Resolved]
  - Myocardial infarction [Recovered/Resolved]
  - Dyspepsia [Not Recovered/Not Resolved]
  - Constipation [Not Recovered/Not Resolved]
